FAERS Safety Report 14875109 (Version 1)
Quarter: 2018Q2

REPORT INFORMATION
  Report Type: Spontaneous
  Country: US (occurrence: US)
  Receive Date: 20180424
  Receipt Date: 20180424
  Transmission Date: 20180711
  Serious: No
  Sender: FDA-Public Use
  Company Number: None

PATIENT
  Sex: Female

DRUGS (1)
  1. ENBREL [Suspect]
     Active Substance: ETANERCEPT
     Indication: RHEUMATOID ARTHRITIS
     Route: 058
     Dates: start: 20180208, end: 20180419

REACTIONS (5)
  - Hypersensitivity [None]
  - Arthritis [None]
  - Limb discomfort [None]
  - Dizziness [None]
  - Disease recurrence [None]
